FAERS Safety Report 24461961 (Version 1)
Quarter: 2024Q4

REPORT INFORMATION
  Report Type: Report from Study
  Country: US (occurrence: US)
  Receive Date: 20241018
  Receipt Date: 20241018
  Transmission Date: 20250115
  Serious: No
  Sender: ROCHE
  Company Number: US-ROCHE-3577535

PATIENT
  Age: 52 Year
  Sex: Male

DRUGS (9)
  1. RITUXAN [Suspect]
     Active Substance: RITUXIMAB
     Indication: Immune thrombocytopenia
     Route: 065
     Dates: start: 20240519
  2. RITUXAN [Suspect]
     Active Substance: RITUXIMAB
     Indication: Diffuse large B-cell lymphoma
  3. ALBUTEROL [Concomitant]
     Active Substance: ALBUTEROL
     Dosage: NEBULIZER
     Dates: start: 20120330
  4. ALLOPURINOL [Concomitant]
     Active Substance: ALLOPURINOL
     Route: 048
  5. BARIUM SULFATE [Concomitant]
     Active Substance: BARIUM SULFATE
     Dosage: 2 % ORAL SUSPENTION, DRINK ONE BOTTLE 450 ML 2 HOUR PRIOR
  6. BENZONATATE [Concomitant]
     Active Substance: BENZONATATE
     Dosage: 2 SPRAY DAILY
     Dates: start: 20240116
  7. LEVOCETIRIZINE [Concomitant]
     Active Substance: LEVOCETIRIZINE
     Dosage: EVERY EVENING
     Route: 048
  8. VALACYCLOVIR HYDROCHLORIDE [Concomitant]
     Active Substance: VALACYCLOVIR HYDROCHLORIDE
     Route: 048
     Dates: start: 20230419, end: 20240419
  9. FLUTICASONE [Concomitant]
     Active Substance: FLUTICASONE
     Indication: Rhinitis allergic
     Dosage: 2 SPRAY DAILY
     Dates: start: 20230501

REACTIONS (8)
  - Sinusitis [Unknown]
  - Splenomegaly [Unknown]
  - Blood immunoglobulin M increased [Unknown]
  - Platelet count decreased [Unknown]
  - Contusion [Unknown]
  - Haemorrhage [Unknown]
  - Herpes zoster [Unknown]
  - COVID-19 [Unknown]
